FAERS Safety Report 5995797-3 (Version None)
Quarter: 2008Q4

REPORT INFORMATION
  Report Type: 
  Country: None (occurrence: None)
  Receive Date: 20081212
  Receipt Date: 20081202
  Transmission Date: 20090506
  Serious: Yes (Hospitalization)
  Sender: FDA-Public Use
  Company Number: US-JNJFOC-20081200820

PATIENT
  Sex: Male
  Weight: 36.9 kg

DRUGS (22)
  1. REMICADE [Suspect]
     Dosage: DOSE DECREASED TO 5 MG/KG (200 MG) FROM 10 MG/KG.
  2. REMICADE [Suspect]
     Dosage: DOSE INCREASED TO 10 MG/KG
  3. REMICADE [Suspect]
     Dosage: 5MG/KG
  4. REMICADE [Suspect]
     Indication: INFLAMMATORY BOWEL DISEASE
  5. MERCAPTOPURINE [Concomitant]
  6. ALLOPURINOL [Concomitant]
  7. FOLIC ACID [Concomitant]
  8. ZOFRAN [Concomitant]
  9. LACTOBACILLUS [Concomitant]
  10. NORTRIPTYLINE HCL [Concomitant]
  11. M.V.I. [Concomitant]
  12. TYLENOL (CAPLET) [Concomitant]
  13. BENADRYL [Concomitant]
  14. CULTURELLE [Concomitant]
  15. NALTREXONE [Concomitant]
  16. COUMADIN [Concomitant]
  17. PREVACID [Concomitant]
  18. IRON [Concomitant]
  19. LACTOSE [Concomitant]
  20. ZANTAC [Concomitant]
  21. LEXAPRO [Concomitant]
  22. SACCHRAMISES BALLARDII [Concomitant]

REACTIONS (10)
  - ANAEMIA [None]
  - CYTOMEGALOVIRUS COLITIS [None]
  - CYTOMEGALOVIRUS VIRAEMIA [None]
  - GIARDIASIS [None]
  - INFLAMMATORY BOWEL DISEASE [None]
  - JOINT EFFUSION [None]
  - SINUSITIS [None]
  - STAPHYLOCOCCAL INFECTION [None]
  - THROMBOSIS [None]
  - VENOUS THROMBOSIS [None]
